FAERS Safety Report 7658232-5 (Version None)
Quarter: 2011Q3

REPORT INFORMATION
  Report Type: 
  Country: None (occurrence: None)
  Receive Date: 20110804
  Receipt Date: 20110804
  Transmission Date: 20111222
  Serious: Yes (Hospitalization)
  Sender: FDA-Public Use
  Company Number: None

PATIENT
  Age: 31 Year
  Sex: Male
  Weight: 104.3273 kg

DRUGS (3)
  1. CLOZAPINE [Suspect]
     Indication: SCHIZOAFFECTIVE DISORDER
     Dosage: 250MG HS PO
     Route: 048
     Dates: start: 20110716
  2. CLOZAPINE [Suspect]
     Indication: CARDIAC DISORDER
     Dosage: 250MG HS PO
     Route: 048
     Dates: start: 20110716
  3. CLOZAPINE [Suspect]
     Indication: BIPOLAR DISORDER
     Dosage: 250MG HS PO
     Route: 048
     Dates: start: 20110716

REACTIONS (5)
  - DIARRHOEA [None]
  - PYREXIA [None]
  - CHEST PAIN [None]
  - ELECTROCARDIOGRAM CHANGE [None]
  - EJECTION FRACTION DECREASED [None]
